FAERS Safety Report 9289916 (Version 2)
Quarter: 2013Q2

REPORT INFORMATION
  Report Type: Spontaneous
  Country: US (occurrence: US)
  Receive Date: 20130515
  Receipt Date: 20130527
  Transmission Date: 20140414
  Serious: Yes (Life-Threatening, Hospitalization)
  Sender: FDA-Public Use
  Company Number: US-GE HEALTHCARE MEDICAL DIAGNOSTICS-INOX-PR-1305S-0001

PATIENT
  Age: 51 Year
  Sex: Male

DRUGS (3)
  1. INDIUM IN111 OXINE [Suspect]
     Indication: OSTEOMYELITIS
     Route: 042
     Dates: start: 20130507, end: 20130507
  2. INDIUM IN111 OXINE [Suspect]
     Indication: DIAGNOSTIC PROCEDURE
  3. INSULIN [Concomitant]

REACTIONS (3)
  - Cardiac arrest [Recovered/Resolved]
  - Nausea [Recovered/Resolved]
  - Vomiting projectile [Recovered/Resolved]
